FAERS Safety Report 8189156-5 (Version None)
Quarter: 2012Q1

REPORT INFORMATION
  Report Type: 
  Country: None (occurrence: None)
  Receive Date: 20120306
  Receipt Date: 20120306
  Transmission Date: 20120608
  Serious: Yes (Life-Threatening)
  Sender: FDA-Public Use
  Company Number: None

PATIENT
  Age: 88 Year
  Sex: Female
  Weight: 39.0093 kg

DRUGS (3)
  1. CIPROFLOXACIN HCL [Suspect]
     Indication: ESCHERICHIA INFECTION
     Dosage: 500 MG TAB 2X DAY ORAL
     Route: 048
     Dates: start: 20120125
  2. CIPROFLOXACIN HCL [Suspect]
     Indication: ESCHERICHIA INFECTION
     Dosage: 500 MG TAB 2X DAY ORAL
     Route: 048
     Dates: start: 20120126
  3. CIPROFLOXACIN HCL [Suspect]
     Indication: ESCHERICHIA INFECTION
     Dosage: 500 MG TAB 2X DAY ORAL
     Route: 048
     Dates: start: 20120124

REACTIONS (4)
  - CONTUSION [None]
  - INSOMNIA [None]
  - HALLUCINATION, AUDITORY [None]
  - HALLUCINATION [None]
